FAERS Safety Report 21333479 (Version 1)
Quarter: 2022Q3

REPORT INFORMATION
  Report Type: Other
  Country: CA (occurrence: None)
  Receive Date: 20220914
  Receipt Date: 20220914
  Transmission Date: 20221027
  Serious: No
  Sender: FDA-Public Use
  Company Number: CA-ROCHE-3176670

PATIENT
  Age: 41 Year
  Sex: Female

DRUGS (6)
  1. OCREVUS [Suspect]
     Active Substance: OCRELIZUMAB
     Indication: Relapsing-remitting multiple sclerosis
     Dosage: MORE DOSAGE INFORMATION IS 300 MG AT DAY 0 AND 14, THEN 600 MG EVERY 6 MONTH
     Route: 042
     Dates: start: 20190709
  2. LYRICA [Concomitant]
     Active Substance: PREGABALIN
  3. AMITRIPTYLINE [Concomitant]
     Active Substance: AMITRIPTYLINE
  4. BACLOFEN [Concomitant]
     Active Substance: BACLOFEN
  5. ZOPICLONE [Concomitant]
     Active Substance: ZOPICLONE
  6. EVUSHELD [Concomitant]
     Active Substance: CILGAVIMAB\TIXAGEVIMAB

REACTIONS (1)
  - SARS-CoV-2 test positive [Not Recovered/Not Resolved]

NARRATIVE: CASE EVENT DATE: 20220908
